FAERS Safety Report 7398802-5 (Version None)
Quarter: 2011Q2

REPORT INFORMATION
  Report Type: 
  Country: None (occurrence: None)
  Receive Date: 20110404
  Receipt Date: 20110404
  Transmission Date: 20111010
  Serious: Yes (Life-Threatening, Hospitalization, Disabling)
  Sender: FDA-Public Use
  Company Number: None

PATIENT
  Sex: Female
  Weight: 90.9 kg

DRUGS (1)
  1. COUMADIN [Suspect]
     Indication: HYPOTENSION
     Dosage: 7.5 MILLIGRAMS 1 EVERY EVENING ORAL
     Route: 048
     Dates: start: 20110127, end: 20110221

REACTIONS (1)
  - UNEVALUABLE EVENT [None]
